FAERS Safety Report 7791611-4 (Version None)
Quarter: 2011Q4

REPORT INFORMATION
  Report Type: 
  Country: None (occurrence: None)
  Receive Date: 20111003
  Receipt Date: 20110926
  Transmission Date: 20120403
  Serious: Yes (Hospitalization)
  Sender: FDA-Public Use
  Company Number: FR-ASTELLAS-2011EU005454

PATIENT
  Age: 75 Year
  Sex: Male
  Weight: 72.4 kg

DRUGS (8)
  1. HYDREA [Concomitant]
     Indication: POLYCYTHAEMIA
     Dosage: UNK
     Route: 065
  2. ASPIRIN [Concomitant]
     Dosage: UNK
     Route: 065
  3. CECLOR [Concomitant]
     Indication: BRONCHITIS
     Dosage: UNK
     Route: 065
  4. CLARITHROMYCIN [Suspect]
     Indication: BRONCHITIS
     Dosage: UNK
     Route: 065
     Dates: start: 20110622, end: 20110626
  5. VESICARE [Suspect]
     Indication: POLLAKIURIA
     Dosage: 5 MG, UNKNOWN/D
     Route: 048
     Dates: start: 20110301, end: 20110723
  6. ATACAND [Concomitant]
     Indication: HYPERTENSION
     Dosage: UNK
     Route: 065
  7. CIPROFLOXACIN [Suspect]
     Indication: BRONCHITIS
     Dosage: UNK
     Route: 065
     Dates: start: 20110626
  8. IPERTEN [Concomitant]
     Indication: HYPERTENSION
     Dosage: UNK
     Route: 065

REACTIONS (5)
  - POLYDIPSIA [None]
  - DRY MOUTH [None]
  - BRONCHITIS [None]
  - DYSGEUSIA [None]
  - POLYURIA [None]
